FAERS Safety Report 9709738 (Version 1)
Quarter: 2013Q4

REPORT INFORMATION
  Report Type: Report from Study
  Country: DE (occurrence: DE)
  Receive Date: 20131126
  Receipt Date: 20131126
  Transmission Date: 20140711
  Serious: Yes (Hospitalization)
  Sender: FDA-Public Use
  Company Number: DE-ROCHE-1307270

PATIENT
  Age: 71 Year
  Sex: Male
  Weight: 76 kg

DRUGS (4)
  1. BEVACIZUMAB [Suspect]
     Indication: COLORECTAL CANCER METASTATIC
     Route: 042
     Dates: start: 20121213, end: 20130711
  2. 5-FLUOROURACIL [Concomitant]
     Indication: CHEMOTHERAPY
     Route: 042
     Dates: start: 20121213, end: 20130718
  3. FOLINIC ACID [Concomitant]
     Indication: CHEMOTHERAPY
     Route: 042
     Dates: start: 20121213, end: 20130718
  4. VERGENTAN [Concomitant]
     Indication: VOMITING
     Route: 042
     Dates: start: 20120115, end: 20130718

REACTIONS (2)
  - Fall [Recovered/Resolved]
  - Craniocerebral injury [Recovered/Resolved]
